FAERS Safety Report 8385927-0 (Version None)
Quarter: 2012Q2

REPORT INFORMATION
  Report Type: 
  Country: None (occurrence: None)
  Receive Date: 20120525
  Receipt Date: 20120516
  Transmission Date: 20120825
  Serious: Yes (Disabling)
  Sender: FDA-Public Use
  Company Number: CN-JNJFOC-20120413626

PATIENT
  Sex: Male
  Weight: 66 kg

DRUGS (1)
  1. ITRACONAZOLE [Suspect]
     Indication: ACUTE LEUKAEMIA
     Route: 048
     Dates: start: 20111001, end: 20111010

REACTIONS (1)
  - RENAL IMPAIRMENT [None]
